FAERS Safety Report 19430823 (Version 2)
Quarter: 2021Q3

REPORT INFORMATION
  Report Type: Spontaneous
  Country: GB (occurrence: GB)
  Receive Date: 20210618
  Receipt Date: 20210827
  Transmission Date: 20211014
  Serious: Yes (Death, Congenital Anomaly, Other)
  Sender: FDA-Public Use
  Company Number: GB-AUROBINDO-AUR-APL-2021-024661

PATIENT
  Sex: Female
  Weight: 2.5 kg

DRUGS (7)
  1. RITONAVIR. [Suspect]
     Active Substance: RITONAVIR
     Indication: HIV INFECTION
     Dosage: 1 DOSAGE FORM, QD
     Route: 048
     Dates: start: 20200601, end: 20200801
  2. TRUVADA [Suspect]
     Active Substance: EMTRICITABINE\TENOFOVIR DISOPROXIL FUMARATE
     Indication: HIV INFECTION
     Dosage: 1 DOSAGE FORM, ONCE A DAY
     Route: 064
     Dates: start: 20200801
  3. ISENTRESS [Suspect]
     Active Substance: RALTEGRAVIR POTASSIUM
     Indication: HIV INFECTION
     Dosage: 1 DOSAGE FORM, ONCE A DAY
     Route: 064
     Dates: start: 20200801
  4. RITONAVIR. [Suspect]
     Active Substance: RITONAVIR
     Dosage: 1 DOSAGE FORM, QD
     Route: 064
  5. DESCOVY [Suspect]
     Active Substance: EMTRICITABINE\TENOFOVIR ALAFENAMIDE FUMARATE
     Indication: HIV INFECTION
     Dosage: 1 DOSAGE FORM, ONCE A DAY
     Route: 064
     Dates: end: 20200601
  6. REYATAZ [Suspect]
     Active Substance: ATAZANAVIR SULFATE
     Indication: HIV INFECTION
     Dosage: 1 DOSAGE FORM, ONCE A DAY
     Route: 064
     Dates: start: 20200601, end: 20200801
  7. ABACAVIR+LAMIVUDINE FILM COATED TABLET [Suspect]
     Active Substance: ABACAVIR\LAMIVUDINE
     Indication: HIV INFECTION
     Dosage: 1 DOSAGE FORM, ONCE A DAY
     Route: 064
     Dates: start: 20200601, end: 20200801

REACTIONS (5)
  - Premature baby [Unknown]
  - Death [Fatal]
  - Congenital hydrocephalus [Not Recovered/Not Resolved]
  - Spina bifida [Not Recovered/Not Resolved]
  - Foetal exposure during pregnancy [Recovered/Resolved]

NARRATIVE: CASE EVENT DATE: 2020
